FAERS Safety Report 25272189 (Version 6)
Quarter: 2025Q3

REPORT INFORMATION
  Report Type: Spontaneous
  Country: AR (occurrence: AR)
  Receive Date: 20250506
  Receipt Date: 20250818
  Transmission Date: 20251020
  Serious: Yes (Other)
  Sender: SANDOZ
  Company Number: AR-002147023-NVSC2025AR072119

PATIENT
  Age: 50 Year
  Sex: Female

DRUGS (2)
  1. FULVESTRANT [Suspect]
     Active Substance: FULVESTRANT
     Indication: Breast cancer metastatic
     Dosage: 2 DOSAGE FORM (2 OF 250 MG), QMO (TO  THE BUTTOCK AND ONE IN EACH THIGH)
     Route: 030
     Dates: start: 20250218, end: 20250729
  2. KISQALI [Suspect]
     Active Substance: RIBOCICLIB SUCCINATE
     Indication: Breast cancer metastatic
     Dosage: 3 OF 200MG (600MG), QD (TOGETHER WITH  BREAKFAST, FOR 21 DAYS, THEN REST FOR 1  WEEK)
     Route: 048
     Dates: start: 20250218, end: 20250810

REACTIONS (11)
  - Bone neoplasm [Unknown]
  - Tumour invasion [Recovering/Resolving]
  - Dysgraphia [Unknown]
  - Malaise [Unknown]
  - Paraesthesia [Unknown]
  - Wound secretion [Unknown]
  - Aphonia [Unknown]
  - Wound [Unknown]
  - Pain in extremity [Unknown]
  - Nodule [Unknown]
  - Drug ineffective [Unknown]

NARRATIVE: CASE EVENT DATE: 20250619
